FAERS Safety Report 8785771 (Version 1)
Quarter: 2012Q4

REPORT INFORMATION
  Report Type: 
  Country: US (occurrence: US)
  Receive Date: 20120914
  Receipt Date: 20120914
  Transmission Date: 20130627
  Serious: Yes (Death)
  Sender: FDA-Public Use
  Company Number: US-GLAXOSMITHKLINE-A0993335A

PATIENT
  Age: 69 Year
  Sex: Male

DRUGS (10)
  1. VOTRIENT [Suspect]
     Indication: RENAL CANCER
     Dosage: 800MG Per day
     Route: 048
     Dates: start: 20120806
  2. LANTUS [Concomitant]
  3. MEGESTROL [Concomitant]
  4. HYDROCODONE [Concomitant]
  5. GLIMEPIRIDE [Concomitant]
  6. TAMSULOSIN [Concomitant]
  7. NATEGLINIDE [Concomitant]
  8. PRAVASTATIN [Concomitant]
  9. HYDROCORTISONE [Concomitant]
  10. LOSARTAN [Concomitant]

REACTIONS (1)
  - Death [Fatal]
